FAERS Safety Report 7447243-0 (Version None)
Quarter: 2011Q2

REPORT INFORMATION
  Report Type: 
  Country: None (occurrence: None)
  Receive Date: 20110429
  Receipt Date: 20101215
  Transmission Date: 20111010
  Serious: No
  Sender: FDA-Public Use
  Company Number: US-ASTRAZENECA-2010SE59637

PATIENT
  Sex: Female

DRUGS (3)
  1. NEXIUM [Suspect]
     Route: 048
  2. PRILOSEC OTC [Suspect]
     Route: 048
  3. PRILOSEC [Suspect]
     Route: 048

REACTIONS (7)
  - INCORRECT DOSE ADMINISTERED [None]
  - DYSPNOEA [None]
  - DYSPEPSIA [None]
  - DRUG DOSE OMISSION [None]
  - ABDOMINAL PAIN UPPER [None]
  - DRUG INEFFECTIVE [None]
  - BURNING SENSATION [None]
